FAERS Safety Report 7506763-0 (Version None)
Quarter: 2011Q2

REPORT INFORMATION
  Report Type: 
  Country: None (occurrence: None)
  Receive Date: 20110526
  Receipt Date: 20110523
  Transmission Date: 20111010
  Serious: No
  Sender: FDA-Public Use
  Company Number: US-PFIZER INC-2011111941

PATIENT
  Sex: Male
  Weight: 90.703 kg

DRUGS (1)
  1. ADVIL LIQUI-GELS [Suspect]
     Indication: BACK PAIN
     Dosage: UNK
     Dates: start: 20070101

REACTIONS (1)
  - EXPIRED DRUG ADMINISTERED [None]
